FAERS Safety Report 4720747-7 (Version None)
Quarter: 2005Q3

REPORT INFORMATION
  Report Type: 
  Country: None (occurrence: None)
  Receive Date: 20050719
  Receipt Date: 20050630
  Transmission Date: 20060218
  Serious: Yes (Hospitalization)
  Sender: FDA-Public Use
  Company Number: DSA_60502_2005

PATIENT

DRUGS (1)
  1. DIASTAT [Suspect]
     Dosage: 60 MG ONCE
     Dates: start: 20050101

REACTIONS (2)
  - RESPIRATORY ARREST [None]
  - RESPIRATORY DEPRESSION [None]
